FAERS Safety Report 4528491-6 (Version None)
Quarter: 2004Q4

REPORT INFORMATION
  Report Type: 
  Country: None (occurrence: None)
  Receive Date: 20041216
  Receipt Date: 20041111
  Transmission Date: 20050328
  Serious: Yes (Other)
  Sender: FDA-Public Use
  Company Number: 200413472JP

PATIENT
  Age: 31 Year
  Sex: Male

DRUGS (6)
  1. KETEK [Suspect]
     Indication: ACUTE TONSILLITIS
     Route: 048
     Dates: start: 20040824, end: 20040828
  2. KYORIN AP 2 [Concomitant]
     Indication: ACUTE TONSILLITIS
     Route: 048
     Dates: start: 20040817, end: 20040821
  3. TRANSAMIN [Concomitant]
     Indication: ACUTE TONSILLITIS
     Route: 048
     Dates: start: 20040817, end: 20040821
  4. LOXOPROFEN [Concomitant]
     Indication: ACUTE TONSILLITIS
     Route: 048
     Dates: start: 20040817, end: 20040821
  5. MUCODYNE [Concomitant]
     Indication: ACUTE TONSILLITIS
     Route: 048
     Dates: start: 20040817, end: 20040821
  6. FLOMOX [Concomitant]
     Indication: ACUTE TONSILLITIS
     Route: 048
     Dates: start: 20040817, end: 20040821

REACTIONS (2)
  - CONVULSION [None]
  - PYREXIA [None]
